FAERS Safety Report 8696555 (Version 2)
Quarter: 2012Q4

REPORT INFORMATION
  Report Type: 
  Country: US (occurrence: US)
  Receive Date: 20120801
  Receipt Date: 20121119
  Transmission Date: 20130627
  Serious: Yes (Hospitalization)
  Sender: FDA-Public Use
  Company Number: US-BAYER-2012-074023

PATIENT
  Age: 22 Year
  Sex: Female
  Weight: 42 kg

DRUGS (19)
  1. YASMIN [Suspect]
     Indication: ACNE
     Dosage: UNK
     Dates: start: 200401, end: 200907
  2. YASMIN [Suspect]
     Indication: IRREGULAR PERIODS
  3. LIALDA [Concomitant]
     Indication: ULCERATIVE COLITIS
     Dosage: UNK
     Dates: start: 200907
  4. BELLADONNA AND PHENOBARBITONE [Concomitant]
     Dosage: UNK
     Dates: start: 20090622
  5. CIPRO [Concomitant]
  6. DONNATAL [Concomitant]
  7. TYLENOL WITH CODEINE [Concomitant]
  8. PREDNISONE [Concomitant]
  9. PRILOSEC [Concomitant]
  10. FEOSOL [Concomitant]
  11. MESALAMINE [Concomitant]
  12. AVELOX [Concomitant]
  13. NASACORT [Concomitant]
  14. ROWASA [Concomitant]
  15. XANAX [Concomitant]
  16. VICODIN [Concomitant]
  17. ANTIBIOTICS [Concomitant]
     Dosage: UNK
     Dates: start: 2004, end: 2010
  18. ANTI-ASTHMATICS [Concomitant]
     Dosage: UNK
     Dates: start: 2005, end: 2010
  19. NSAID^S [Concomitant]
     Dosage: UNK
     Dates: start: 2005, end: 2010

REACTIONS (4)
  - Pulmonary embolism [Recovering/Resolving]
  - Injury [Recovering/Resolving]
  - Pain [Recovering/Resolving]
  - Pain [None]
